FAERS Safety Report 5026253-7 (Version None)
Quarter: 2006Q2

REPORT INFORMATION
  Report Type: 
  Country: None (occurrence: None)
  Receive Date: 20060614
  Receipt Date: 20060516
  Transmission Date: 20061013
  Serious: Yes (Death, Hospitalization)
  Sender: FDA-Public Use
  Company Number: BR-ABBOTT-06P-020-0333652-00

PATIENT
  Sex: Male

DRUGS (3)
  1. HUMIRA [Suspect]
     Indication: RHEUMATOID ARTHRITIS
     Route: 050
     Dates: start: 20051101
  2. ANTI-INFLAMMATORY [Suspect]
     Indication: RHEUMATOID ARTHRITIS
  3. ANALGESICS [Suspect]
     Indication: RHEUMATOID ARTHRITIS

REACTIONS (2)
  - BRONCHOPNEUMONIA [None]
  - GASTRIC HAEMORRHAGE [None]
